FAERS Safety Report 7485698-6 (Version None)
Quarter: 2011Q2

REPORT INFORMATION
  Report Type: 
  Country: None (occurrence: None)
  Receive Date: 20110516
  Receipt Date: 20110516
  Transmission Date: 20111010
  Serious: Yes (Other)
  Sender: FDA-Public Use
  Company Number: None

PATIENT
  Age: 76 Year
  Sex: Female
  Weight: 88.4514 kg

DRUGS (2)
  1. PRADAXA [Suspect]
     Indication: ATRIAL FIBRILLATION
     Dosage: 150 MG 2X DAY
     Dates: start: 20110101, end: 20110301
  2. WARFARIN SODIUM [Suspect]
     Dosage: 7.5MG + 3.5 1X DAY
     Dates: start: 20080701, end: 20100101

REACTIONS (3)
  - DIARRHOEA [None]
  - POLYMYALGIA RHEUMATICA [None]
  - DEPRESSION [None]
